FAERS Safety Report 8471741-4 (Version None)
Quarter: 2012Q2

REPORT INFORMATION
  Report Type: 
  Country: None (occurrence: None)
  Receive Date: 20120627
  Receipt Date: 20120618
  Transmission Date: 20120825
  Serious: Yes (Hospitalization)
  Sender: FDA-Public Use
  Company Number: JP-ASTRAZENECA-2012SE37090

PATIENT
  Age: 30 Year
  Sex: Male
  Weight: 116 kg

DRUGS (5)
  1. CETIRIZINE HYDROCHLORIDE [Concomitant]
     Indication: ASTHMA
     Route: 048
     Dates: end: 20120528
  2. MONTELUKAST SODIUM [Concomitant]
     Indication: ASTHMA
     Route: 048
     Dates: end: 20120528
  3. COUGHNOL L [Concomitant]
     Indication: ASTHMA
     Route: 048
     Dates: end: 20120528
  4. HUSTAZOL [Concomitant]
     Indication: ASTHMA
     Route: 048
     Dates: end: 20120528
  5. SYMBICORT [Suspect]
     Indication: ASTHMA
     Dosage: 1 DF TWO TIMES A DAY
     Route: 055
     Dates: end: 20120528

REACTIONS (4)
  - MYOGLOBINAEMIA [None]
  - BLOOD CREATINE PHOSPHOKINASE INCREASED [None]
  - PARALYSIS [None]
  - HYPOKALAEMIA [None]
